FAERS Safety Report 5786637-6 (Version None)
Quarter: 2008Q2

REPORT INFORMATION
  Report Type: 
  Country: None (occurrence: None)
  Receive Date: 20080618
  Receipt Date: 20080612
  Transmission Date: 20081010
  Serious: Yes (Other)
  Sender: FDA-Public Use
  Company Number: GXKR2008GB05460

PATIENT
  Age: 83 Year
  Sex: Female
  Weight: 74 kg

DRUGS (13)
  1. DOXAZOSIN MESYLATE [Suspect]
     Indication: ESSENTIAL HYPERTENSION
     Dosage: 1 MG, BID, ORAL
     Route: 048
     Dates: start: 20080124, end: 20080415
  2. AMITRIPTYLINE HYDROCHLORIDE [Concomitant]
  3. AMLODIPINE [Concomitant]
  4. ATENOLOL [Concomitant]
  5. ATORVASTATIN CALCIUM [Concomitant]
  6. CODEINE PHOSPHATE AND ACETAMINOPHEN [Concomitant]
  7. FUROSEMIDE [Concomitant]
  8. LORATADINE [Concomitant]
  9. MIXTARD /DEN/ (INSULIN, INSULIN INJECTION, ISOPHANE) [Concomitant]
  10. OMEPRAZOLE [Concomitant]
  11. RAMIPRIL [Concomitant]
  12. SPECTRABAN (UREA) LOTION [Concomitant]
  13. KETOKONAZOL (KETOCONAZOLE) SHAMPOO [Concomitant]

REACTIONS (1)
  - HALLUCINATION, VISUAL [None]
